FAERS Safety Report 6132356-6 (Version None)
Quarter: 2009Q1

REPORT INFORMATION
  Report Type: 
  Country: None (occurrence: None)
  Receive Date: 20090324
  Receipt Date: 20090309
  Transmission Date: 20090719
  Serious: Yes (Life-Threatening, Hospitalization)
  Sender: FDA-Public Use
  Company Number: 2009AL001542

PATIENT
  Age: 79 Year
  Sex: Male

DRUGS (11)
  1. RAMIPRIL [Suspect]
     Indication: HYPERTENSION
     Dosage: 1.25 MG; QD; PO
     Route: 048
     Dates: end: 20080620
  2. SPIRONOLACTONE [Suspect]
     Indication: CARDIAC FAILURE
     Dosage: 25 MG; QD; PO
     Route: 048
     Dates: end: 20080620
  3. TORASEMIDE [Concomitant]
  4. XIPAMIDE [Concomitant]
  5. PHENPROCOUMON [Concomitant]
  6. ALLOPURINOL [Concomitant]
  7. METAMIZOLE [Concomitant]
  8. METOCLOPRAMIDE [Concomitant]
  9. PANTOZOL [Concomitant]
  10. RISPERIDONE [Concomitant]
  11. SIMVASTATIN [Concomitant]

REACTIONS (7)
  - DIZZINESS [None]
  - FALL [None]
  - HYPOKALAEMIA [None]
  - HYPONATRAEMIA [None]
  - LOSS OF CONSCIOUSNESS [None]
  - PROTHROMBIN TIME PROLONGED [None]
  - SYNCOPE [None]
